FAERS Safety Report 6707907 (Version 7)
Quarter: 2013Q4

REPORT INFORMATION
  Report Type: Spontaneous
  Country: US (occurrence: None)
  Receive Date: 20080528
  Receipt Date: 20131226
  Transmission Date: 20140711
  Serious: Yes (Other)
  Sender: FDA-Public Use
  Company Number: PHEH2008US02179

PATIENT
  Age: 59 Year
  Sex: Female
  Weight: 72.6 kg

DRUGS (16)
  1. TASIGNA [Suspect]
     Indication: SYSTEMIC MASTOCYTOSIS
     Dosage: 400 MG, BID, ORAL
     Route: 048
     Dates: start: 20071228, end: 20080115
  2. ZOMETA (ZOLEDRONATE) [Suspect]
     Indication: HYPERCHOLESTEROLAEMIA
  3. CHOLINE SALICYLATE\MAGNESIUM SALICYLATE [Suspect]
     Indication: MYALGIA
     Dosage: 750 MG, BID, ORAL
     Route: 048
     Dates: start: 20080104, end: 20080125
  4. LEVOTHYROXINE SODIUM [Concomitant]
  5. MARINOL [Concomitant]
  6. ALPRAZOLAM (ALPRAZOLAM) [Concomitant]
  7. ZANTAC [Concomitant]
  8. HYDROXYZINE [Concomitant]
  9. BENADRYL [Concomitant]
  10. DESOXIMETASONE [Concomitant]
  11. HYDROCORTONE [Concomitant]
  12. TYLENOL (PARACETAMOL) [Concomitant]
  13. MULTIPLE VITAMINS [Concomitant]
  14. AMBIEN [Concomitant]
  15. SPRYCEL (DASATINIB) [Suspect]
     Dates: end: 20110302
  16. LIPITOR (ATORVASTATIN) [Suspect]
     Indication: HYPERCHOLESTEROLAEMIA
     Dates: start: 200709, end: 20080125

REACTIONS (16)
  - Liver function test abnormal [None]
  - Blood urea increased [None]
  - Blood sodium decreased [None]
  - Blood glucose increased [None]
  - Nausea [None]
  - Dyspnoea [None]
  - Blood alkaline phosphatase increased [None]
  - Pruritus [None]
  - Anxiety [None]
  - Vomiting [None]
  - Feeling abnormal [None]
  - Myalgia [None]
  - Aspartate aminotransferase increased [None]
  - Arthralgia [None]
  - Alanine aminotransferase increased [None]
  - Blood bilirubin increased [None]
